FAERS Safety Report 25761619 (Version 2)
Quarter: 2025Q4

REPORT INFORMATION
  Report Type: Report from Study
  Country: CA (occurrence: CA)
  Receive Date: 20250904
  Receipt Date: 20251216
  Transmission Date: 20260117
  Serious: No
  Sender: IPSEN BIOPHARMACEUTICALS, INC.
  Company Number: CA-Medison-000963

PATIENT
  Age: 8 Year
  Sex: Female
  Weight: 21 kg

DRUGS (6)
  1. BYLVAY [Suspect]
     Active Substance: ODEVIXIBAT
     Indication: Progressive familial intrahepatic cholestasis
     Route: 048
  2. BYLVAY [Suspect]
     Active Substance: ODEVIXIBAT
     Route: 048
     Dates: start: 20241004
  3. BYLVAY [Suspect]
     Active Substance: ODEVIXIBAT
     Route: 048
     Dates: start: 20250826
  4. URSODIOL [Concomitant]
     Active Substance: URSODIOL
  5. RIFAMPIN [Concomitant]
     Active Substance: RIFAMPIN
  6. ATARAX [Concomitant]
     Active Substance: HYDROXYZINE HYDROCHLORIDE

REACTIONS (7)
  - Diarrhoea [Not Recovered/Not Resolved]
  - Weight decreased [Unknown]
  - Abdominal pain upper [Not Recovered/Not Resolved]
  - Scratch [Unknown]
  - Bile acids increased [Unknown]
  - Skin lesion [Unknown]
  - Faeces soft [Unknown]

NARRATIVE: CASE EVENT DATE: 20250201
